FAERS Safety Report 6043766-X (Version None)
Quarter: 2009Q1

REPORT INFORMATION
  Report Type: 
  Country: None (occurrence: None)
  Receive Date: 20090120
  Receipt Date: 20090112
  Transmission Date: 20090719
  Serious: Yes (Other)
  Sender: FDA-Public Use
  Company Number: PHHY2009GB01065

PATIENT
  Age: 64 Year
  Sex: Male

DRUGS (5)
  1. COMTESS [Suspect]
     Indication: PARKINSON'S DISEASE
     Dosage: UNK
     Route: 048
     Dates: start: 20080611, end: 20081101
  2. AMITRIPTYLINE HCL [Concomitant]
     Dosage: 10 MG
     Dates: start: 20080611
  3. CABERGOLINE [Concomitant]
     Dosage: 6 MG
  4. RASAGILINE [Concomitant]
     Dosage: UNK
     Dates: start: 20071201, end: 20080501
  5. SINEMET [Concomitant]

REACTIONS (2)
  - BRUXISM [None]
  - TOOTH FRACTURE [None]
